FAERS Safety Report 13297731 (Version 1)
Quarter: 2017Q1

REPORT INFORMATION
  Report Type: Spontaneous
  Country: US (occurrence: US)
  Receive Date: 20170305
  Receipt Date: 20170305
  Transmission Date: 20170428
  Serious: No
  Sender: FDA-Public Use
  Company Number: None

PATIENT
  Age: 57 Year
  Weight: 81.72 kg

DRUGS (1)
  1. ACYCLOVIR, 800MG CAMBER [Suspect]
     Active Substance: ACYCLOVIR
     Route: 048

REACTIONS (1)
  - Product contamination physical [None]

NARRATIVE: CASE EVENT DATE: 20170305
